FAERS Safety Report 9458862 (Version 4)
Quarter: 2013Q4

REPORT INFORMATION
  Report Type: Spontaneous
  Country: US (occurrence: US)
  Receive Date: 20130814
  Receipt Date: 20131113
  Transmission Date: 20140711
  Serious: Yes (Other)
  Sender: FDA-Public Use
  Company Number: US-GLAXOSMITHKLINE-A1036606A

PATIENT
  Age: 66 Year
  Sex: Female
  Weight: 70.5 kg

DRUGS (2)
  1. VENTOLIN [Suspect]
     Indication: MULTIPLE ALLERGIES
     Route: 055
     Dates: start: 2012
  2. MONTELUKAST [Concomitant]

REACTIONS (8)
  - Pulmonary congestion [Recovered/Resolved]
  - Respiratory tract irritation [Recovered/Resolved]
  - Burning sensation [Recovered/Resolved]
  - Pneumonitis [Recovered/Resolved]
  - Wheezing [Recovered/Resolved]
  - Lung disorder [Recovered/Resolved]
  - Inhalation therapy [Recovered/Resolved]
  - Product quality issue [Unknown]
